FAERS Safety Report 25203401 (Version 1)
Quarter: 2025Q2

REPORT INFORMATION
  Report Type: Report from Study
  Country: US (occurrence: US)
  Receive Date: 20250416
  Receipt Date: 20250416
  Transmission Date: 20250716
  Serious: Yes (Other)
  Sender: ABBVIE
  Company Number: US-ABBVIE-6194085

PATIENT
  Age: 70 Year
  Sex: Female
  Weight: 104 kg

DRUGS (13)
  1. HUMIRA [Suspect]
     Active Substance: ADALIMUMAB
     Indication: Psoriatic arthropathy
     Dosage: FORM STRENGTH: 40 MILLIGRAM
     Route: 058
     Dates: start: 20210124
  2. MOMETASONE FUROATE [Concomitant]
     Active Substance: MOMETASONE FUROATE
     Indication: Multiple allergies
  3. XYZAL [Concomitant]
     Active Substance: LEVOCETIRIZINE DIHYDROCHLORIDE
     Indication: Multiple allergies
  4. PROAIR RESPICLICK [Concomitant]
     Active Substance: ALBUTEROL SULFATE
     Indication: Asthma
  5. GABAPENTIN [Concomitant]
     Active Substance: GABAPENTIN
     Indication: Neuralgia
  6. METOPROLOL SUCCINATE [Concomitant]
     Active Substance: METOPROLOL SUCCINATE
     Indication: Hypertension
  7. RIZATRIPTAN [Concomitant]
     Active Substance: RIZATRIPTAN
     Indication: Migraine
  8. FLUTICASONE PROPIONATE [Concomitant]
     Active Substance: FLUTICASONE PROPIONATE
     Indication: Asthma
  9. NORVASC [Concomitant]
     Active Substance: AMLODIPINE BESYLATE
     Indication: Hypertension
  10. OMEPRAZOLE [Concomitant]
     Active Substance: OMEPRAZOLE
     Indication: Gastrooesophageal reflux disease
  11. ALENDRONATE SODIUM [Concomitant]
     Active Substance: ALENDRONATE SODIUM
     Indication: Osteoporosis
  12. ELIQUIS [Concomitant]
     Active Substance: APIXABAN
     Indication: Atrial fibrillation
  13. VENLAFAXINE [Concomitant]
     Active Substance: VENLAFAXINE HYDROCHLORIDE
     Indication: Depression

REACTIONS (3)
  - Osteoarthritis [Recovered/Resolved]
  - Arthritis [Recovered/Resolved]
  - Arthralgia [Recovered/Resolved]

NARRATIVE: CASE EVENT DATE: 20210124
